FAERS Safety Report 12824171 (Version 1)
Quarter: 2016Q4

REPORT INFORMATION
  Report Type: Spontaneous
  Country: BR (occurrence: BR)
  Receive Date: 20161007
  Receipt Date: 20161007
  Transmission Date: 20170207
  Serious: Yes (Other)
  Sender: FDA-Public Use
  Company Number: BR-PFIZER INC-2016347979

PATIENT
  Sex: Female
  Weight: 64 kg

DRUGS (1)
  1. GEODON [Suspect]
     Active Substance: ZIPRASIDONE HYDROCHLORIDE\ZIPRASIDONE MESYLATE
     Dosage: 160 MG (4 CAPSULES), DAILY
     Route: 048

REACTIONS (4)
  - Abnormal behaviour [Unknown]
  - Product use issue [Unknown]
  - Suicidal ideation [Unknown]
  - Feeling abnormal [Unknown]
